FAERS Safety Report 24657564 (Version 1)
Quarter: 2024Q4

REPORT INFORMATION
  Report Type: Spontaneous
  Country: JP (occurrence: JP)
  Receive Date: 20241125
  Receipt Date: 20241125
  Transmission Date: 20250115
  Serious: Yes (Other)
  Sender: ASTELLAS
  Company Number: JP-ASTELLAS-2024-AER-019348

PATIENT
  Age: 60 Year
  Sex: Female

DRUGS (5)
  1. PROGRAF [Suspect]
     Active Substance: TACROLIMUS
     Indication: Rheumatoid arthritis
     Route: 048
     Dates: start: 202407, end: 2024
  2. PROGRAF [Suspect]
     Active Substance: TACROLIMUS
     Indication: Polymyositis
     Route: 048
     Dates: start: 2024
  3. PROGRAF [Suspect]
     Active Substance: TACROLIMUS
     Indication: Interstitial lung disease
  4. MEDROL [Concomitant]
     Active Substance: METHYLPREDNISOLONE
     Indication: Product used for unknown indication
     Route: 048
     Dates: start: 2024, end: 2024
  5. MEDROL [Concomitant]
     Active Substance: METHYLPREDNISOLONE
     Dosage: DOSES HAVE BEEN REDUCED
     Route: 048
     Dates: start: 2024

REACTIONS (14)
  - Interstitial lung disease [Unknown]
  - Dermatomyositis [Recovering/Resolving]
  - C-reactive protein increased [Unknown]
  - Blood creatine phosphokinase increased [Recovered/Resolved]
  - Motor dysfunction [Unknown]
  - Eye pain [Unknown]
  - Insomnia [Unknown]
  - Arthralgia [Unknown]
  - Abdominal discomfort [Unknown]
  - Abdominal pain [Unknown]
  - Grip strength decreased [Unknown]
  - Dysstasia [Unknown]
  - Pyrexia [Unknown]
  - Musculoskeletal stiffness [Unknown]

NARRATIVE: CASE EVENT DATE: 20240101
